FAERS Safety Report 9560777 (Version 1)
Quarter: 2013Q2

REPORT INFORMATION
  Report Type: Spontaneous
  Country: US (occurrence: None)
  Receive Date: 20130403
  Receipt Date: 20130403
  Transmission Date: 20140414
  Serious: Yes (Death)
  Sender: FDA-Public Use
  Company Number: US-2012-10722

PATIENT
  Age: 9 Year
  Sex: 0

DRUGS (11)
  1. BUSULFEX (BUSULFAN) INJECTION [Suspect]
     Indication: BONE MARROW CONDITIONING REGIMEN
     Route: 042
  2. FLUDARABINE\FLUDARABINE PHOSPHATE [Suspect]
     Indication: BONE MARROW CONDITIONING REGIMEN
     Dosage: 4 DAYS FOR PATIENTS OF WEIGHT LESS THAN 12KG
     Route: 051
  3. ALEMTUZUMAB [Suspect]
     Indication: BONE MARROW CONDITIONING REGIMEN
  4. CYCLOSPORIN A (CYCLOSPORIN A) [Concomitant]
  5. METHOTREXATE (METHOTREXATE) [Concomitant]
  6. LORAZEPAM [Concomitant]
  7. N-ACETYLCYSTEINE [Concomitant]
  8. ACYCLOVIR (ACICLOVIR) [Concomitant]
  9. FLUCONAZOLE [Concomitant]
  10. CLOTRIMAZOLE [Concomitant]
  11. IMMUNOGLOBULIN G HUMAN [Concomitant]

REACTIONS (1)
  - Transplant failure [None]
